FAERS Safety Report 6133291-X (Version None)
Quarter: 2009Q1

REPORT INFORMATION
  Report Type: 
  Country: None (occurrence: None)
  Receive Date: 20090326
  Receipt Date: 20090317
  Transmission Date: 20090719
  Serious: Yes (Hospitalization)
  Sender: FDA-Public Use
  Company Number: SE-ASTRAZENECA-2009SE01166

PATIENT
  Age: 27478 Day
  Sex: Female

DRUGS (9)
  1. ATACAND [Suspect]
     Route: 048
     Dates: end: 20081216
  2. SALURES [Suspect]
     Route: 048
     Dates: end: 20081216
  3. PH0SPHORAL [Suspect]
     Route: 048
     Dates: start: 20081214, end: 20081215
  4. ALFADIL [Suspect]
     Route: 048
     Dates: end: 20081216
  5. FOSAMAX VECKOTABLETT [Concomitant]
  6. CALCICHEW-D3 [Concomitant]
  7. LEVOTHYROXINE SODIUM [Concomitant]
  8. NITROMEX [Concomitant]
  9. DURBIS RETARD [Concomitant]

REACTIONS (2)
  - BLOOD CREATININE INCREASED [None]
  - HYPOKALAEMIA [None]
